FAERS Safety Report 16235841 (Version 1)
Quarter: 2019Q2

REPORT INFORMATION
  Report Type: Report from Study
  Country: US (occurrence: US)
  Receive Date: 20190424
  Receipt Date: 20190424
  Transmission Date: 20190711
  Serious: Yes (Hospitalization, Other)
  Sender: FDA-Public Use
  Company Number: US-TAIHO ONCOLOGY  INC-EU-2019-01253

PATIENT
  Sex: Male

DRUGS (1)
  1. LONSURF [Suspect]
     Active Substance: TIPIRACIL HYDROCHLORIDE\TRIFLURIDINE
     Indication: COLORECTAL CANCER METASTATIC
     Dosage: DOSAGE, FREQUENCY, AND CYCLE UNKNOWN
     Route: 048
     Dates: start: 201901

REACTIONS (3)
  - Staphylococcal sepsis [Unknown]
  - Urinary incontinence [Unknown]
  - Ureteric obstruction [Unknown]
